FAERS Safety Report 13333318 (Version 4)
Quarter: 2018Q1

REPORT INFORMATION
  Report Type: Spontaneous
  Country: US (occurrence: US)
  Receive Date: 20170314
  Receipt Date: 20180220
  Transmission Date: 20180508
  Serious: Yes (Other)
  Sender: FDA-Public Use
  Company Number: US-PFIZER INC-2017106555

PATIENT
  Age: 86 Year
  Sex: Female
  Weight: 43.9 kg

DRUGS (18)
  1. SINEMET [Concomitant]
     Active Substance: CARBIDOPA\LEVODOPA
     Dosage: 1 DF, 2X/DAY
     Route: 048
  2. COLACE [Concomitant]
     Active Substance: DOCUSATE SODIUM
     Indication: CONSTIPATION
     Dosage: 100 MG, AS NEEDED (2 TIMES DAILY )
     Route: 048
  3. FLORINEF ACETATE [Concomitant]
     Active Substance: FLUDROCORTISONE ACETATE
     Dosage: UNK , 3X/DAY(TAKE 0.5 TABLETS (0.05 MG) BY MOUTH EVERY 8 HOURS)
     Route: 048
  4. CARBIDOPA LEVODOPA [Concomitant]
     Active Substance: CARBIDOPA\LEVODOPA
     Indication: PARKINSON^S DISEASE
     Dosage: 1/2 TABLET AT 8AM ,12PM, 5PM, AND ONE AT 10PM
  5. LYRICA [Suspect]
     Active Substance: PREGABALIN
     Indication: PAIN
     Dosage: 100 MG, 2X/DAY
     Dates: start: 2015, end: 201710
  6. PREGABALIN. [Suspect]
     Active Substance: PREGABALIN
     Indication: POLYNEUROPATHY
  7. FENTANYL. [Concomitant]
     Active Substance: FENTANYL
     Indication: PAIN
     Dosage: 25 UG, CYCLIC (APPLIED EVERY 3RD DAY)
     Dates: end: 201710
  8. FLORINEF ACETATE [Concomitant]
     Active Substance: FLUDROCORTISONE ACETATE
     Dosage: 0.1 MG, 3X/DAY (EVERY 8 HOURS)
     Route: 048
     Dates: start: 20171025
  9. TRAMADOL. [Concomitant]
     Active Substance: TRAMADOL
     Indication: PAIN
     Dosage: 50 MG, AS NEEDED (1 TABLET EVERY 6-8 HOURS)
     Dates: end: 201710
  10. TYLENOL [Concomitant]
     Active Substance: ACETAMINOPHEN
     Dosage: 1000 MG, 3X/DAY
     Route: 048
  11. SINEMET [Concomitant]
     Active Substance: CARBIDOPA\LEVODOPA
     Dosage: UNK, 3X/DAY (BY MOUTH 3 TIMES DAILY AT 8 AM , 12NOON, 5PM)
     Route: 048
  12. DAILY-VITE [Concomitant]
     Dosage: UNK
  13. PREGABALIN. [Suspect]
     Active Substance: PREGABALIN
     Indication: PAIN
     Dosage: 100 MG, 2X/DAY
     Dates: start: 201710
  14. MIDODRINE [Concomitant]
     Active Substance: MIDODRINE
     Indication: HYPOTENSION
     Dosage: 20 MG, DAILY (TWO IN MORNING, ONE AT NOON, AND ONE AT BEDTIME)
  15. LYRICA [Suspect]
     Active Substance: PREGABALIN
     Indication: POLYNEUROPATHY
     Dosage: 100 MG, 2X/DAY (EVERY 12 HOURS)
     Route: 048
     Dates: start: 20160913
  16. MIDODRINE [Concomitant]
     Active Substance: MIDODRINE
     Indication: PARKINSON^S DISEASE
  17. KAY CIEL [Concomitant]
     Active Substance: POTASSIUM CHLORIDE
     Dosage: 15 ML, 2X/DAY
     Route: 048
  18. PROAMATINE [Concomitant]
     Active Substance: MIDODRINE HYDROCHLORIDE
     Dosage: 5 MG, 3X/DAY
     Route: 048

REACTIONS (9)
  - Constipation [Unknown]
  - Neuralgia [Unknown]
  - Parkinson^s disease [Unknown]
  - Gait disturbance [Unknown]
  - Asthenia [Unknown]
  - Condition aggravated [Unknown]
  - Coordination abnormal [Unknown]
  - Fatigue [Unknown]
  - Cough [Recovering/Resolving]
